FAERS Safety Report 16649032 (Version 3)
Quarter: 2019Q4

REPORT INFORMATION
  Report Type: Report from Study
  Country: US (occurrence: US)
  Receive Date: 20190730
  Receipt Date: 20191004
  Transmission Date: 20200122
  Serious: Yes (Death, Hospitalization)
  Sender: FDA-Public Use
  Company Number: US-PFIZER INC-2019321461

PATIENT
  Age: 33 Year
  Sex: Male

DRUGS (13)
  1. EPINEPHRINE. [Suspect]
     Active Substance: EPINEPHRINE
     Indication: CIRCULATORY COLLAPSE
     Dosage: UNK
     Dates: start: 2015
  2. EPINEPHRINE. [Suspect]
     Active Substance: EPINEPHRINE
     Dosage: UNK
     Dates: start: 2015
  3. FOSTAL ALLERGEN TREE POLLEN [Concomitant]
     Dosage: UNK (TREE POLLEN)
     Dates: start: 2015
  4. ALLERGEN, COCKROACH [Concomitant]
     Dosage: UNK
     Dates: start: 2015
  5. EPINEPHRINE. [Suspect]
     Active Substance: EPINEPHRINE
     Dosage: UNK
     Dates: start: 2015
  6. ALLERGENS, HOUSE DUST + MITE [Concomitant]
     Dosage: UNK STANDARDIZED HOUSE DUST MITE (0.7 ML IN A 5 ML VIAL)
     Dates: start: 2015
  7. EPINEPHRINE. [Suspect]
     Active Substance: EPINEPHRINE
     Dosage: UNK
     Dates: start: 2015
  8. DIPHENHYDRAMINE HCL [Suspect]
     Active Substance: DIPHENHYDRAMINE HYDROCHLORIDE
     Indication: CARDIOPULMONARY FAILURE
     Dosage: UNK
     Dates: start: 2015
  9. ADVAIR HFA [Concomitant]
     Active Substance: FLUTICASONE PROPIONATE\SALMETEROL XINAFOATE
     Indication: ASTHMA
     Dosage: 1 DF, 2X/DAY
     Route: 055
     Dates: start: 2015
  10. ALLERGEN, GRASS POLLEN [Concomitant]
     Dosage: UNK GRASS POLLEN (EQUAL PARTS OF TIMOTHY, JOHNSON, BERMUDA TO A TOTAL OF 0.6 ML IN A 5 ML VIAL)
     Dates: start: 2015
  11. ALLERGEN, POLLEN + PLANT EXTRACT [Concomitant]
     Dosage: UNK (WEED POLLEN )
     Dates: start: 2015
  12. EPINEPHRINE. [Suspect]
     Active Substance: EPINEPHRINE
     Dosage: UNK
     Dates: start: 2015
  13. ALLERGENS, ANIMAL FUR + EPITHELIUM [Concomitant]
     Dosage: UNK (CAT EPITHELIA, 0.6 ML IN A 5 ML VIAL), DOG EPITHELIA
     Dates: start: 2015

REACTIONS (1)
  - Drug ineffective [Fatal]

NARRATIVE: CASE EVENT DATE: 2015
